FAERS Safety Report 4589990-4 (Version None)
Quarter: 2005Q1

REPORT INFORMATION
  Report Type: 
  Country: None (occurrence: None)
  Receive Date: 20050125
  Receipt Date: 20040928
  Transmission Date: 20050727
  Serious: No
  Sender: FDA-Public Use
  Company Number: USA040772704

PATIENT
  Sex: Female

DRUGS (6)
  1. FORTEO [Suspect]
     Indication: OSTEOPOROSIS
     Dates: start: 20030401
  2. LEVOXYL [Concomitant]
  3. CARDURA [Concomitant]
  4. LIPITOR [Concomitant]
  5. ESTROGEN PATCH [Concomitant]
  6. VITAMIN D [Concomitant]

REACTIONS (5)
  - HEADACHE [None]
  - HEART RATE INCREASED [None]
  - INJECTION SITE ERYTHEMA [None]
  - MEDICATION ERROR [None]
  - OVERDOSE [None]
